FAERS Safety Report 6835366-6 (Version None)
Quarter: 2010Q3

REPORT INFORMATION
  Report Type: 
  Country: None (occurrence: None)
  Receive Date: 20100713
  Receipt Date: 20100702
  Transmission Date: 20110219
  Serious: Yes (Other)
  Sender: FDA-Public Use
  Company Number: FR-NOVOPROD-311064

PATIENT
  Age: 67 Year
  Sex: Female

DRUGS (3)
  1. VICTOZA [Suspect]
     Indication: DIABETES MELLITUS INADEQUATE CONTROL
     Dosage: UK/SC
     Route: 058
     Dates: start: 20100621, end: 20100621
  2. ZESTRIL [Concomitant]
  3. GLUCOPHAGE [Concomitant]

REACTIONS (2)
  - FACE OEDEMA [None]
  - OEDEMA PERIPHERAL [None]
